FAERS Safety Report 11105827 (Version 1)
Quarter: 2015Q2

REPORT INFORMATION
  Report Type: Spontaneous
  Country: DE (occurrence: DE)
  Receive Date: 20150512
  Receipt Date: 20150512
  Transmission Date: 20150821
  Serious: Yes (Other)
  Sender: FDA-Public Use
  Company Number: DE-SUN PHARMACEUTICAL INDUSTRIES LTD-2015R1-97080

PATIENT
  Age: 35 Year
  Sex: Female
  Weight: 74.5 kg

DRUGS (3)
  1. RISPERIDONE. [Suspect]
     Active Substance: RISPERIDONE
     Indication: DEPRESSION
     Dosage: 2 MG, QD
     Route: 048
     Dates: start: 20140309, end: 20141126
  2. CITALOPRAM [Suspect]
     Active Substance: CITALOPRAM HYDROBROMIDE
     Indication: DEPRESSION
     Dosage: 20 MG, QD
     Route: 048
     Dates: start: 20140309, end: 20141126
  3. FOLIO FORTE [Concomitant]
     Active Substance: FOLIC ACID\VITAMINS
     Indication: PSYCHOTIC DISORDER
     Dosage: 0.8 MG, DAILY
     Route: 048
     Dates: start: 20140415, end: 20141126

REACTIONS (2)
  - Foetal exposure during pregnancy [Unknown]
  - Cystitis [Unknown]
